FAERS Safety Report 4272974-3 (Version None)
Quarter: 2004Q1

REPORT INFORMATION
  Report Type: 
  Country: None (occurrence: None)
  Receive Date: 20040116
  Receipt Date: 20040112
  Transmission Date: 20041129
  Serious: Yes (Death)
  Sender: FDA-Public Use
  Company Number: 200410256US

PATIENT
  Sex: 0
  Weight: 227.3 kg

DRUGS (2)
  1. LOVENOX [Suspect]
  2. UNFRACTIONATED HEPARIN [Concomitant]
     Indication: PULMONARY EMBOLISM
     Dosage: DOSE: NOT PROVIDED
     Route: 042

REACTIONS (1)
  - PULMONARY EMBOLISM [None]
